FAERS Safety Report 5477944-5 (Version None)
Quarter: 2007Q4

REPORT INFORMATION
  Report Type: 
  Country: None (occurrence: None)
  Receive Date: 20071005
  Receipt Date: 20070926
  Transmission Date: 20080405
  Serious: Yes (Life-Threatening, Hospitalization)
  Sender: FDA-Public Use
  Company Number: JP-JNJFOC-20070406323

PATIENT
  Sex: Female
  Weight: 62 kg

DRUGS (22)
  1. REMICADE [Suspect]
     Route: 042
  2. REMICADE [Suspect]
     Indication: RHEUMATOID ARTHRITIS
     Route: 042
  3. RHEUMATREX [Suspect]
     Route: 048
  4. RHEUMATREX [Suspect]
     Route: 048
  5. RHEUMATREX [Suspect]
     Indication: RHEUMATOID ARTHRITIS
     Route: 048
  6. LIMETHASON [Suspect]
     Indication: RHEUMATOID ARTHRITIS
     Route: 042
  7. GASLON N [Concomitant]
  8. BEHYD-RA [Concomitant]
     Route: 048
  9. BUFFERIN [Concomitant]
     Route: 048
  10. NORVASC [Concomitant]
     Route: 048
  11. NITOROL R [Concomitant]
     Route: 048
  12. SIMVASTATIN [Concomitant]
     Route: 048
  13. INFREE S [Concomitant]
     Route: 048
  14. RISEDRONATE SODIUM [Concomitant]
     Route: 048
  15. VOLTAREN [Concomitant]
  16. FOLIAMIN [Concomitant]
  17. LANSOPRAZOLE [Concomitant]
  18. ROHYPNOL [Concomitant]
  19. MOBIC [Concomitant]
     Indication: RHEUMATOID ARTHRITIS
     Route: 048
  20. SELBEX [Concomitant]
     Indication: GASTRITIS PROPHYLAXIS
     Route: 048
  21. MICARDIS [Concomitant]
     Indication: HYPERTENSION
     Route: 048
  22. ADALAT [Concomitant]
     Indication: HYPERTENSION
     Route: 048

REACTIONS (2)
  - B-CELL LYMPHOMA [None]
  - ENTEROCOLITIS [None]
